FAERS Safety Report 15171699 (Version 2)
Quarter: 2018Q3

REPORT INFORMATION
  Report Type: Spontaneous
  Country: FR (occurrence: FR)
  Receive Date: 20180720
  Receipt Date: 20180801
  Transmission Date: 20181010
  Serious: Yes (Other)
  Sender: FDA-Public Use
  Company Number: FR-JNJFOC-20180714550

PATIENT
  Age: 45 Year
  Sex: Female

DRUGS (5)
  1. INFLIXIMAB, RECOMBINANT [Suspect]
     Active Substance: INFLIXIMAB
     Indication: PSORIASIS
     Route: 042
  2. ADALIMUMAB [Interacting]
     Active Substance: ADALIMUMAB
     Indication: PSORIASIS
     Route: 065
  3. SECUKINUMAB. [Interacting]
     Active Substance: SECUKINUMAB
     Indication: PSORIASIS
     Route: 065
  4. ETANERCEPT [Interacting]
     Active Substance: ETANERCEPT
     Indication: PSORIASIS
     Route: 065
  5. METHOTREXATE SODIUM. [Interacting]
     Active Substance: METHOTREXATE SODIUM
     Indication: PSORIASIS
     Route: 065

REACTIONS (4)
  - Maternal exposure before pregnancy [Recovered/Resolved]
  - Drug-device interaction [Unknown]
  - Abortion spontaneous [Unknown]
  - Unintended pregnancy [Recovered/Resolved]
